FAERS Safety Report 23563630 (Version 1)
Quarter: 2024Q1

REPORT INFORMATION
  Report Type: Spontaneous
  Country: US (occurrence: US)
  Receive Date: 20240226
  Receipt Date: 20240226
  Transmission Date: 20240409
  Serious: Yes (Hospitalization, Other)
  Sender: FDA-Public Use
  Company Number: US-SANOFI-01948947

PATIENT
  Age: 75 Year
  Sex: Male

DRUGS (2)
  1. LUMIZYME [Suspect]
     Active Substance: ALGLUCOSIDASE ALFA
     Dosage: UNK
     Route: 042
  2. LUMIZYME [Suspect]
     Active Substance: ALGLUCOSIDASE ALFA
     Dosage: 40 MG/KG
     Route: 042

REACTIONS (5)
  - Thrombocytopenia [Unknown]
  - Hypothermia [Unknown]
  - Bicytopenia [Unknown]
  - Asthenia [Unknown]
  - Therapeutic response decreased [Unknown]
